FAERS Safety Report 4551433-4 (Version None)
Quarter: 2005Q1

REPORT INFORMATION
  Report Type: 
  Country: None (occurrence: None)
  Receive Date: 20050104
  Receipt Date: 20041216
  Transmission Date: 20050727
  Serious: Yes (Life-Threatening, Hospitalization)
  Sender: FDA-Public Use
  Company Number: 2004-03821

PATIENT
  Age: 80 Year
  Sex: Male

DRUGS (1)
  1. IMMUCYST (BCG-IT (CONNAUGHT)) [Suspect]
     Indication: BLADDER CANCER
     Dosage: 81.0 UG
     Route: 043
     Dates: start: 20040425, end: 20041108

REACTIONS (11)
  - ALANINE AMINOTRANSFERASE INCREASED [None]
  - ASPARTATE AMINOTRANSFERASE INCREASED [None]
  - BILIRUBIN CONJUGATED INCREASED [None]
  - BLOOD BILIRUBIN INCREASED [None]
  - BLOOD CREATININE INCREASED [None]
  - BLOOD UREA INCREASED [None]
  - BOVINE TUBERCULOSIS [None]
  - GAMMA-GLUTAMYLTRANSFERASE INCREASED [None]
  - HEPATIC FUNCTION ABNORMAL [None]
  - PYREXIA [None]
  - TUBERCULOSIS URETER [None]
